FAERS Safety Report 16549614 (Version 1)
Quarter: 2019Q3

REPORT INFORMATION
  Report Type: Spontaneous
  Country: US (occurrence: US)
  Receive Date: 20190710
  Receipt Date: 20190710
  Transmission Date: 20191004
  Serious: Yes (Death, Hospitalization, Other)
  Sender: FDA-Public Use
  Company Number: US-TEVA-2019-US-1073650

PATIENT
  Sex: Female

DRUGS (1)
  1. AUSTEDO [Suspect]
     Active Substance: DEUTETRABENAZINE
     Indication: HUNTINGTON^S DISEASE
     Route: 048
     Dates: start: 201704, end: 20190430

REACTIONS (7)
  - Pneumonia [Unknown]
  - Therapy cessation [Unknown]
  - Fall [Recovered/Resolved with Sequelae]
  - Insurance issue [Recovered/Resolved]
  - General physical health deterioration [Unknown]
  - Hospice care [Not Recovered/Not Resolved]
  - Huntington^s disease [Fatal]

NARRATIVE: CASE EVENT DATE: 2017
